FAERS Safety Report 11327156 (Version 1)
Quarter: 2015Q3

REPORT INFORMATION
  Report Type: Spontaneous
  Country: JP (occurrence: JP)
  Receive Date: 20150731
  Receipt Date: 20150731
  Transmission Date: 20151125
  Serious: Yes (Death, Hospitalization, Other)
  Sender: FDA-Public Use
  Company Number: JP-PFIZER INC-2015227311

PATIENT
  Age: 71 Year
  Sex: Male
  Weight: 61 kg

DRUGS (20)
  1. CAMPTO [Suspect]
     Active Substance: IRINOTECAN
     Dosage: 300 MG/BODY (181.2 MG/M2), 1X/DAY
     Route: 041
     Dates: start: 20140623, end: 20140623
  2. LEVOFOLINATE YAKULT [Suspect]
     Active Substance: LEVOLEUCOVORIN CALCIUM
     Dosage: 330 MG/BODY (199.3 MG/M2), 1X/DAY
     Route: 041
     Dates: start: 20140804, end: 20140804
  3. CAMPTO [Suspect]
     Active Substance: IRINOTECAN
     Indication: PANCREATIC CARCINOMA
     Dosage: 290 MG/BODY (175.1 MG/M2), 1X/DAY
     Route: 041
     Dates: start: 20140521, end: 20140521
  4. CAMPTO [Suspect]
     Active Substance: IRINOTECAN
     Dosage: 300 MG/BODY (181.2 MG/M2), 1X/DAY
     Route: 041
     Dates: start: 20140804, end: 20140804
  5. ELPLAT [Suspect]
     Active Substance: OXALIPLATIN
     Dosage: 140 MG/BODY (84.5 MG/M2), 1X/DAY
     Route: 041
     Dates: start: 20140623, end: 20140623
  6. LEVOFOLINATE YAKULT [Suspect]
     Active Substance: LEVOLEUCOVORIN CALCIUM
     Dosage: 330 MG/BODY (199.3 MG/M2), 1X/DAY
     Route: 041
     Dates: start: 20140623, end: 20140623
  7. 5-FU [Suspect]
     Active Substance: FLUOROURACIL
     Dosage: 4000 MG/BODY/D1-2 (2415.5 MG/M2/D1-2)
     Route: 040
     Dates: start: 20140804, end: 20140804
  8. CAMPTO [Suspect]
     Active Substance: IRINOTECAN
     Dosage: 300 MG/BODY (181.2 MG/M2), 1X/DAY
     Route: 041
     Dates: start: 20140714, end: 20140714
  9. 5-FU [Suspect]
     Active Substance: FLUOROURACIL
     Dosage: 660 MG/BODY (398.6 MG/M2), 1X/DAY
     Route: 040
     Dates: start: 20140623, end: 20140623
  10. 5-FU [Suspect]
     Active Substance: FLUOROURACIL
     Dosage: 660 MG/BODY (398.6 MG/M2), 1X/DAY
     Route: 040
     Dates: start: 20140714, end: 20140714
  11. 5-FU [Suspect]
     Active Substance: FLUOROURACIL
     Dosage: 3900 MG/BODY/D1-2 (2355.1 MG/M2/D1-2)
     Route: 041
     Dates: start: 20140521, end: 20140521
  12. ELPLAT [Suspect]
     Active Substance: OXALIPLATIN
     Dosage: 140 MG/BODY (84.5 MG/M2), 1X/DAY
     Route: 041
     Dates: start: 20140804, end: 20140804
  13. LEVOFOLINATE YAKULT [Suspect]
     Active Substance: LEVOLEUCOVORIN CALCIUM
     Dosage: 330 MG/BODY (199.3 MG/M2), 1X/DAY
     Route: 041
     Dates: start: 20140714, end: 20140714
  14. 5-FU [Suspect]
     Active Substance: FLUOROURACIL
     Indication: PANCREATIC CARCINOMA
     Dosage: 660 MG/BODY (398.6 MG/M2), 1X/DAY
     Route: 040
     Dates: start: 20140521, end: 20140521
  15. LEVOFOLINATE YAKULT [Suspect]
     Active Substance: LEVOLEUCOVORIN CALCIUM
     Indication: PANCREATIC CARCINOMA
     Dosage: 330 MG/BODY (199.3 MG/M2), 1X/DAY
     Route: 041
     Dates: start: 20140521, end: 20140521
  16. 5-FU [Suspect]
     Active Substance: FLUOROURACIL
     Dosage: 4000 MG/BODY/D1-2 (2415.5 MG/M2/D1-2)
     Route: 041
     Dates: start: 20140714, end: 20140714
  17. ELPLAT [Suspect]
     Active Substance: OXALIPLATIN
     Indication: PANCREATIC CARCINOMA
     Dosage: 140 MG/BODY (84.5 MG/M2), 1X/DAY
     Route: 041
     Dates: start: 20140521, end: 20140521
  18. ELPLAT [Suspect]
     Active Substance: OXALIPLATIN
     Dosage: 140 MG/BODY (84.5 MG/M2), 1X/DAY
     Route: 041
     Dates: start: 20140714, end: 20140714
  19. 5-FU [Suspect]
     Active Substance: FLUOROURACIL
     Dosage: 4000 MG/BODY/D1-2 (2415.5 MG/M2/D1-2)
     Route: 041
     Dates: start: 20140623, end: 20140623
  20. 5-FU [Suspect]
     Active Substance: FLUOROURACIL
     Dosage: 660 MG/BODY (398.6 MG/M2), 1X/DAY
     Route: 040
     Dates: start: 20140804, end: 20140804

REACTIONS (11)
  - Neutrophil count decreased [Not Recovered/Not Resolved]
  - Fatigue [Recovered/Resolved]
  - Decreased appetite [Unknown]
  - Stomatitis [Not Recovered/Not Resolved]
  - Platelet count decreased [Not Recovered/Not Resolved]
  - Hyperglycaemia [Unknown]
  - Diarrhoea [Not Recovered/Not Resolved]
  - Disease progression [Fatal]
  - Pancreatic carcinoma [Fatal]
  - Haemoglobin decreased [Unknown]
  - White blood cell count decreased [Not Recovered/Not Resolved]

NARRATIVE: CASE EVENT DATE: 20140602
